FAERS Safety Report 15540908 (Version 1)
Quarter: 2018Q4

REPORT INFORMATION
  Report Type: Spontaneous
  Country: GR (occurrence: GR)
  Receive Date: 20181023
  Receipt Date: 20181023
  Transmission Date: 20190205
  Serious: Yes (Hospitalization, Other)
  Sender: FDA-Public Use
  Company Number: GR-CELGENEUS-GRC-20181006654

PATIENT
  Age: 83 Year
  Sex: Male

DRUGS (1)
  1. AZACITIDINE INJECTABLE [Suspect]
     Active Substance: AZACITIDINE
     Indication: ACUTE MYELOID LEUKAEMIA
     Dosage: 75 MILLIGRAM/SQ. METER
     Route: 058

REACTIONS (6)
  - Diarrhoea haemorrhagic [Unknown]
  - Abdominal pain [Unknown]
  - Pyrexia [Unknown]
  - Prostatitis [Unknown]
  - Herpes zoster [Unknown]
  - Pyrexia [Unknown]

NARRATIVE: CASE EVENT DATE: 20140815
